FAERS Safety Report 6990591-9 (Version None)
Quarter: 2010Q3

REPORT INFORMATION
  Report Type: 
  Country: None (occurrence: None)
  Receive Date: 20100916
  Receipt Date: 20100705
  Transmission Date: 20110219
  Serious: Yes (Death)
  Sender: FDA-Public Use
  Company Number: GB-PFIZER INC-2010074633

PATIENT
  Sex: Female
  Weight: 61 kg

DRUGS (9)
  1. LYRICA [Suspect]
     Indication: GENERALISED ANXIETY DISORDER
     Dosage: 75 MG, 2X/DAY
     Route: 048
     Dates: start: 20100608
  2. QUETIAPINE [Concomitant]
     Dosage: 25 MG, UNK
  3. MIRTAZAPINE [Concomitant]
     Dosage: 15 MG, 1X/DAY AT NIGHT
  4. FENTANYL [Concomitant]
     Dosage: 12 UG, HOURLY
  5. RAMIPRIL [Concomitant]
     Dosage: 2.5 MG, 1X/DAY
  6. DIAZEPAM [Concomitant]
     Dosage: 2 MG, AS NEEDED
  7. SIMVASTATIN [Concomitant]
     Dosage: 20 MG, 1X/DAY AT NIGHT
  8. STRONTIUM RANELATE [Concomitant]
     Dosage: 2 G, 1X/DAY AT NIGHT
  9. INSULIN [Concomitant]
     Dosage: UNK

REACTIONS (1)
  - SUDDEN CARDIAC DEATH [None]
